FAERS Safety Report 6715797-5 (Version None)
Quarter: 2010Q2

REPORT INFORMATION
  Report Type: 
  Country: None (occurrence: None)
  Receive Date: 20100507
  Receipt Date: 20100429
  Transmission Date: 20101027
  Serious: Yes (Hospitalization)
  Sender: FDA-Public Use
  Company Number: US-ELI_LILLY_AND_COMPANY-US201005000335

PATIENT
  Age: 65 Year
  Sex: Male

DRUGS (2)
  1. BYETTA [Suspect]
     Dosage: 5 UG, UNK
  2. GLUCOVANCE [Concomitant]
     Indication: DIABETES MELLITUS

REACTIONS (4)
  - ABDOMINAL PAIN [None]
  - DIABETES MELLITUS INADEQUATE CONTROL [None]
  - LIPASE INCREASED [None]
  - TREATMENT NONCOMPLIANCE [None]
